FAERS Safety Report 6904907-2 (Version None)
Quarter: 2010Q3

REPORT INFORMATION
  Report Type: 
  Country: None (occurrence: None)
  Receive Date: 20100804
  Receipt Date: 20090803
  Transmission Date: 20110219
  Serious: No
  Sender: FDA-Public Use
  Company Number: US-PFIZER INC-2009234679

PATIENT
  Sex: Female

DRUGS (3)
  1. LYRICA [Suspect]
     Indication: NEURALGIA
     Dates: start: 20080101, end: 20080101
  2. PREVACID [Concomitant]
     Dosage: UNK
  3. FEMARA [Concomitant]
     Dosage: UNK

REACTIONS (1)
  - INCONTINENCE [None]
